FAERS Safety Report 6113932-3 (Version None)
Quarter: 2009Q1

REPORT INFORMATION
  Report Type: 
  Country: None (occurrence: None)
  Receive Date: 20090312
  Receipt Date: 20090305
  Transmission Date: 20090719
  Serious: Yes (Death)
  Sender: FDA-Public Use
  Company Number: JP-GENENTECH-239069

PATIENT
  Age: 39 Year
  Sex: Female

DRUGS (2)
  1. RITUXIMAB [Suspect]
     Indication: SYSTEMIC LUPUS ERYTHEMATOSUS
     Dosage: 1000 MG, X2
     Route: 042
     Dates: start: 20050808, end: 20050816
  2. RITUXIMAB [Suspect]
     Dosage: 1000 MG, X2
     Dates: start: 20060707, end: 20060719

REACTIONS (5)
  - ENCEPHALITIS [None]
  - INFECTION [None]
  - PNEUMONIA BACTERIAL [None]
  - PULMONARY EMBOLISM [None]
  - RENAL FAILURE ACUTE [None]
